FAERS Safety Report 4666608-3 (Version None)
Quarter: 2005Q2

REPORT INFORMATION
  Report Type: 
  Country: None (occurrence: None)
  Receive Date: 20050518
  Receipt Date: 20050504
  Transmission Date: 20051028
  Serious: Yes (Hospitalization)
  Sender: FDA-Public Use
  Company Number: MK200405-0020-2

PATIENT
  Age: 54 Year
  Sex: Female

DRUGS (1)
  1. METHADOSE [Suspect]

REACTIONS (11)
  - ANAEMIA [None]
  - CONSTIPATION [None]
  - DIARRHOEA [None]
  - FAECAL INCONTINENCE [None]
  - FLATULENCE [None]
  - GASTROINTESTINAL NECROSIS [None]
  - HAEMORRHOIDS [None]
  - INTESTINAL ISCHAEMIA [None]
  - PYREXIA [None]
  - RECTAL HAEMORRHAGE [None]
  - RECTAL PROLAPSE [None]
